FAERS Safety Report 4861011-5 (Version None)
Quarter: 2005Q4

REPORT INFORMATION
  Report Type: 
  Country: None (occurrence: None)
  Receive Date: 20051220
  Receipt Date: 20050831
  Transmission Date: 20060501
  Serious: No
  Sender: FDA-Public Use
  Company Number: US-GLAXOSMITHKLINE-A0572536A

PATIENT
  Sex: Male

DRUGS (1)
  1. TAGAMET [Suspect]
     Route: 048
     Dates: end: 19970101

REACTIONS (2)
  - BREAST HYPERPLASIA [None]
  - BREAST MASS [None]
